FAERS Safety Report 4541825-1 (Version None)
Quarter: 2004Q4

REPORT INFORMATION
  Report Type: 
  Country: None (occurrence: None)
  Receive Date: 20041230
  Receipt Date: 20041206
  Transmission Date: 20050328
  Serious: Yes (Hospitalization)
  Sender: FDA-Public Use
  Company Number: PHNR2004AU01706

PATIENT
  Age: 14 Year
  Sex: Female

DRUGS (4)
  1. TEGRETOL [Suspect]
     Indication: CONVULSION
     Dosage: UNK, UNK
     Route: 048
     Dates: start: 20040101, end: 20041201
  2. TEGRETOL [Suspect]
     Dosage: 200 MG MANE, 300 MG NOCTE
     Dates: start: 20041201, end: 20041201
  3. HYDROCORTISONE [Concomitant]
  4. TEGRETOL [Suspect]
     Dosage: 200 MG MANE, 300 MG NOCTE
     Dates: start: 20041201

REACTIONS (1)
  - EATING DISORDER [None]
